FAERS Safety Report 10236470 (Version 4)
Quarter: 2014Q3

REPORT INFORMATION
  Report Type: Spontaneous
  Country: TW (occurrence: TW)
  Receive Date: 20140613
  Receipt Date: 20140718
  Transmission Date: 20150326
  Serious: Yes (Death, Hospitalization, Other)
  Sender: FDA-Public Use
  Company Number: TW-BRISTOL-MYERS SQUIBB COMPANY-20935375

PATIENT
  Sex: Male

DRUGS (6)
  1. LEUCOVORIN [Suspect]
     Active Substance: LEUCOVORIN
     Indication: COLORECTAL CANCER METASTATIC
     Dosage: ONGOING
     Dates: start: 20140331
  2. ERBITUX [Suspect]
     Active Substance: CETUXIMAB
     Indication: K-RAS GENE MUTATION
     Route: 042
     Dates: start: 20140331
  3. IRINOTECAN [Suspect]
     Active Substance: IRINOTECAN
     Indication: COLORECTAL CANCER METASTATIC
  4. OXALIPLATIN. [Suspect]
     Active Substance: OXALIPLATIN
     Indication: COLORECTAL CANCER METASTATIC
     Dates: start: 20140331
  5. ERBITUX [Suspect]
     Active Substance: CETUXIMAB
     Indication: COLORECTAL CANCER METASTATIC
     Route: 042
     Dates: start: 20140331
  6. 5-FLUOROURACIL [Suspect]
     Active Substance: FLUOROURACIL
     Indication: COLORECTAL CANCER METASTATIC
     Dosage: ONGOING
     Dates: start: 20140331

REACTIONS (7)
  - Death [Fatal]
  - Rash [Recovered/Resolved]
  - Mucosal ulceration [Recovered/Resolved]
  - Paronychia [Recovered/Resolved]
  - Skin necrosis [Unknown]
  - Mucosal inflammation [Recovered/Resolved]
  - Pyrexia [Unknown]

NARRATIVE: CASE EVENT DATE: 20140331
